FAERS Safety Report 19989339 (Version 4)
Quarter: 2022Q1

REPORT INFORMATION
  Report Type: Spontaneous
  Country: US (occurrence: US)
  Receive Date: 20211025
  Receipt Date: 20220125
  Transmission Date: 20220423
  Serious: Yes (Hospitalization)
  Sender: FDA-Public Use
  Company Number: US-EXELIXIS-CABO-21045287

PATIENT
  Age: 67 Year
  Sex: Male

DRUGS (5)
  1. OPDIVO [Suspect]
     Active Substance: NIVOLUMAB
     Indication: Renal cancer
     Dosage: UNK
     Route: 065
  2. CABOMETYX [Suspect]
     Active Substance: CABOZANTINIB S-MALATE
     Indication: Renal cell carcinoma
     Dosage: UNK
     Route: 065
     Dates: start: 20210927
  3. CABOMETYX [Suspect]
     Active Substance: CABOZANTINIB S-MALATE
     Dosage: 20 MG (TAKING 3 DAYS, 1 DAY OFF, TAKE 2 DAYS, 1 DAY OFF (5 DAYS A WEEK)
     Route: 065
     Dates: start: 20211013, end: 20211103
  4. CABOMETYX [Suspect]
     Active Substance: CABOZANTINIB S-MALATE
     Dosage: 20 MG (TAKING 3 DAYS, 1 DAY OFF, TAKE 2 DAYS, 1 DAY OFF (5 DAYS A WEEK)
     Route: 065
     Dates: start: 20211115
  5. CABOMETYX [Suspect]
     Active Substance: CABOZANTINIB S-MALATE
     Dosage: 20 MILLIGRAM, QD
     Route: 065
     Dates: start: 20211208

REACTIONS (7)
  - Pyrexia [Unknown]
  - Chills [Unknown]
  - Neck pain [Unknown]
  - Hypertension [Recovered/Resolved]
  - Arthralgia [Unknown]
  - Nausea [Unknown]
  - Pulmonary mass [Recovering/Resolving]

NARRATIVE: CASE EVENT DATE: 20211207
